FAERS Safety Report 14993344 (Version 1)
Quarter: 2018Q2

REPORT INFORMATION
  Report Type: Spontaneous
  Country: US (occurrence: US)
  Receive Date: 20180610
  Receipt Date: 20180610
  Transmission Date: 20180711
  Serious: Yes (Hospitalization)
  Sender: FDA-Public Use
  Company Number: PHHY2018US014935

PATIENT
  Age: 36 Year
  Sex: Female

DRUGS (3)
  1. WARFARIN [Concomitant]
     Active Substance: WARFARIN
     Indication: PULMONARY EMBOLISM
     Dosage: UNK
     Route: 065
  2. MYCOPHENOLATE [Suspect]
     Active Substance: MYCOPHENOLIC ACID
     Indication: LUPUS NEPHRITIS
     Dosage: UNK
     Route: 065
  3. MYCOPHENOLATE [Suspect]
     Active Substance: MYCOPHENOLIC ACID
     Indication: ACUTE KIDNEY INJURY

REACTIONS (7)
  - Vomiting [Recovered/Resolved]
  - Product use in unapproved indication [Unknown]
  - Posterior reversible encephalopathy syndrome [Recovered/Resolved]
  - Headache [Recovered/Resolved]
  - Agitation [Recovered/Resolved]
  - Hypertension [Recovered/Resolved]
  - Hypervigilance [Recovered/Resolved]
